FAERS Safety Report 10786040 (Version 3)
Quarter: 2015Q2

REPORT INFORMATION
  Report Type: Report from Study
  Country: JP (occurrence: JP)
  Receive Date: 20150211
  Receipt Date: 20150513
  Transmission Date: 20150821
  Serious: Yes (Death, Hospitalization)
  Sender: FDA-Public Use
  Company Number: PHHY2014JP170906

PATIENT
  Age: 73 Year
  Sex: Male
  Weight: 39 kg

DRUGS (2)
  1. ULTIBRO INHALATION CAPSULES [Suspect]
     Active Substance: GLYCOPYRRONIUM\INDACATEROL
     Indication: CHRONIC OBSTRUCTIVE PULMONARY DISEASE
     Dosage: 1 DF, QD
     Route: 055
     Dates: start: 20140815
  2. MAGMITT [Concomitant]
     Active Substance: MAGNESIUM OXIDE
     Indication: CONSTIPATION
     Dosage: 330 MG, TID
     Route: 048

REACTIONS (3)
  - Cardio-respiratory arrest [Fatal]
  - Pneumothorax spontaneous [Fatal]
  - Vascular rupture [Fatal]

NARRATIVE: CASE EVENT DATE: 20140831
